FAERS Safety Report 21904891 (Version 1)
Quarter: 2023Q1

REPORT INFORMATION
  Report Type: Spontaneous
  Country: AU (occurrence: AU)
  Receive Date: 20230124
  Receipt Date: 20230124
  Transmission Date: 20230417
  Serious: Yes (Hospitalization)
  Sender: FDA-Public Use
  Company Number: AU-TASMAN PHARMA, INC.-2023TSM00034

PATIENT
  Sex: Male

DRUGS (4)
  1. CLOZAPINE [Suspect]
     Active Substance: CLOZAPINE
     Dosage: 250 MG
     Dates: start: 20221130, end: 20221204
  2. CLOZAPINE [Suspect]
     Active Substance: CLOZAPINE
     Dosage: 575 MG
     Dates: start: 20221205, end: 20221214
  3. CLOZAPINE [Suspect]
     Active Substance: CLOZAPINE
     Dosage: 625 MG
     Dates: start: 20221215, end: 20221228
  4. CLOZAPINE [Suspect]
     Active Substance: CLOZAPINE
     Dosage: 125 MG
     Dates: start: 20221229, end: 20230101

REACTIONS (2)
  - Hospitalisation [Recovered/Resolved]
  - Treatment noncompliance [Not Recovered/Not Resolved]

NARRATIVE: CASE EVENT DATE: 20230101
